FAERS Safety Report 24405671 (Version 2)
Quarter: 2025Q1

REPORT INFORMATION
  Report Type: Spontaneous
  Country: PT (occurrence: PT)
  Receive Date: 20241007
  Receipt Date: 20250116
  Transmission Date: 20250409
  Serious: Yes (Other)
  Sender: FRESENIUS KABI
  Company Number: PT-009507513-2409PRT002110

PATIENT
  Age: 48 Year
  Sex: Female

DRUGS (14)
  1. CARBOPLATIN [Suspect]
     Active Substance: CARBOPLATIN
     Indication: Triple negative breast cancer
     Dosage: UNK, WEEKLY (QW), X 12 WEEKS
  2. PACLITAXEL [Suspect]
     Active Substance: PACLITAXEL
     Indication: Triple negative breast cancer
     Dosage: UNK, WEEKLY (QW), X 12 WEEKS
  3. KEYTRUDA [Suspect]
     Active Substance: PEMBROLIZUMAB
     Indication: Triple negative breast cancer
     Dosage: 200 MG, Q3W?FOA-SOLUTION FOR INJECTION
  4. KEYTRUDA [Suspect]
     Active Substance: PEMBROLIZUMAB
     Dosage: 200 MILLIGRAM, Q3W?FOA-SOLUTION FOR INJECTION
     Dates: start: 20240209, end: 20240209
  5. KEYTRUDA [Suspect]
     Active Substance: PEMBROLIZUMAB
     Dosage: 200 MILLIGRAM, Q3W?FOA-SOLUTION FOR INJECTION
     Dates: start: 20240321, end: 20240321
  6. KEYTRUDA [Suspect]
     Active Substance: PEMBROLIZUMAB
     Dosage: 200 MILLIGRAM, Q3W?FOA-SOLUTION FOR INJECTION
     Dates: start: 20240411, end: 20240411
  7. KEYTRUDA [Suspect]
     Active Substance: PEMBROLIZUMAB
     Dosage: 200 MILLIGRAM, Q3W?FOA-SOLUTION FOR INJECTION
     Dates: start: 20240502, end: 20240502
  8. KEYTRUDA [Suspect]
     Active Substance: PEMBROLIZUMAB
     Dosage: 200 MILLIGRAM, Q3W?FOA-SOLUTION FOR INJECTION
     Dates: start: 20240523, end: 20240523
  9. KEYTRUDA [Suspect]
     Active Substance: PEMBROLIZUMAB
     Dosage: 200 MILLIGRAM, Q3W?FOA-SOLUTION FOR INJECTION
     Dates: start: 20240614, end: 20240614
  10. KEYTRUDA [Suspect]
     Active Substance: PEMBROLIZUMAB
     Dosage: 200 MILLIGRAM, Q3W?FOA-SOLUTION FOR INJECTION
     Dates: end: 20240614
  11. EPIRUBICIN [Suspect]
     Active Substance: EPIRUBICIN
     Indication: Triple negative breast cancer
     Dosage: UNK, Q3W, X4
  12. EPIRUBICIN [Suspect]
     Active Substance: EPIRUBICIN
     Dosage: UNK, Q3W, X4
  13. CYCLOPHOSPHAMIDE [Suspect]
     Active Substance: CYCLOPHOSPHAMIDE
     Indication: Triple negative breast cancer
     Dosage: UNK, Q3W, X4
  14. CYCLOPHOSPHAMIDE [Suspect]
     Active Substance: CYCLOPHOSPHAMIDE
     Dosage: UNK, Q3W, X4

REACTIONS (5)
  - Myocarditis [Recovering/Resolving]
  - Myocardial oedema [Unknown]
  - Alanine aminotransferase increased [Unknown]
  - Adverse drug reaction [Unknown]
  - Rosacea [Unknown]

NARRATIVE: CASE EVENT DATE: 20240101
